FAERS Safety Report 12459960 (Version 1)
Quarter: 2016Q2

REPORT INFORMATION
  Report Type: Spontaneous
  Country: US (occurrence: None)
  Receive Date: 20160610
  Receipt Date: 20160610
  Transmission Date: 20160815
  Serious: Yes (Hospitalization, Other)
  Sender: FDA-Public Use
  Company Number: None

PATIENT
  Age: 79 Year
  Sex: Male
  Weight: 73.48 kg

DRUGS (1)
  1. AMIODARONE 100MG [Suspect]
     Active Substance: AMIODARONE
     Indication: ATRIAL FIBRILLATION
     Route: 048
     Dates: start: 201501, end: 20160531

REACTIONS (1)
  - Traumatic lung injury [None]

NARRATIVE: CASE EVENT DATE: 20160531
